FAERS Safety Report 18515135 (Version 1)
Quarter: 2020Q4

REPORT INFORMATION
  Report Type: Spontaneous
  Country: US (occurrence: US)
  Receive Date: 20201117
  Receipt Date: 20201117
  Transmission Date: 20210114
  Serious: Yes (Other)
  Sender: FDA-Public Use
  Company Number: None

PATIENT
  Age: 67 Year
  Sex: Female
  Weight: 79.38 kg

DRUGS (1)
  1. BACITRACIN OPHTHALMIC OINTMENT USP [Suspect]
     Active Substance: BACITRACIN
     Indication: BLEPHARITIS
     Route: 031
     Dates: start: 20201018, end: 20201019

REACTIONS (4)
  - Eye pain [None]
  - Application site swelling [None]
  - Ocular hyperaemia [None]
  - Eye swelling [None]

NARRATIVE: CASE EVENT DATE: 20201018
